FAERS Safety Report 17493944 (Version 1)
Quarter: 2020Q1

REPORT INFORMATION
  Report Type: Spontaneous
  Country: FR (occurrence: FR)
  Receive Date: 20200304
  Receipt Date: 20200304
  Transmission Date: 20200409
  Serious: Yes (Other)
  Sender: FDA-Public Use
  Company Number: FR-ELI_LILLY_AND_COMPANY-FR202002012535

PATIENT
  Sex: Male

DRUGS (2)
  1. OLUMIANT [Suspect]
     Active Substance: BARICITINIB
     Indication: AUTOIMMUNE DISORDER
     Dosage: 4 MG, DAILY
     Route: 065
  2. OLUMIANT [Suspect]
     Active Substance: BARICITINIB
     Dosage: 4 MG
     Route: 065

REACTIONS (4)
  - Prescribed overdose [Unknown]
  - Rectal haemorrhage [Unknown]
  - Clostridium colitis [Unknown]
  - Off label use [Unknown]
